FAERS Safety Report 13088243 (Version 3)
Quarter: 2017Q1

REPORT INFORMATION
  Report Type: Spontaneous
  Country: IT (occurrence: IT)
  Receive Date: 20170105
  Receipt Date: 20170217
  Transmission Date: 20170428
  Serious: Yes (Hospitalization, Other)
  Sender: FDA-Public Use
  Company Number: IT-GLAXOSMITHKLINE-IT2016195294

PATIENT
  Age: 84 Year
  Sex: Male

DRUGS (11)
  1. CARVEDILOL. [Suspect]
     Active Substance: CARVEDILOL
  2. RITONAVIR. [Interacting]
     Active Substance: RITONAVIR
     Indication: HEPATIC CIRRHOSIS
     Dates: start: 20160206, end: 20160219
  3. CARVEDILOL. [Interacting]
     Active Substance: CARVEDILOL
  4. PANTOPRAZOLE [Interacting]
     Active Substance: PANTOPRAZOLE SODIUM
  5. PARITAPREVIR [Interacting]
     Active Substance: PARITAPREVIR
     Indication: HEPATIC CIRRHOSIS
     Dates: start: 20160206, end: 20160219
  6. OMBITASVIR [Interacting]
     Active Substance: OMBITASVIR
     Indication: HEPATIC CIRRHOSIS
     Dates: start: 20160206, end: 20160219
  7. PANTOPRAZOLE [Interacting]
     Active Substance: PANTOPRAZOLE SODIUM
  8. CARVEDILOL. [Interacting]
     Active Substance: CARVEDILOL
  9. PANTOPRAZOLE [Interacting]
     Active Substance: PANTOPRAZOLE SODIUM
  10. RIBAVIRIN. [Interacting]
     Active Substance: RIBAVIRIN
     Indication: HEPATIC CIRRHOSIS
     Dates: start: 20160206, end: 20160219
  11. DASABUVIR [Interacting]
     Active Substance: DASABUVIR
     Indication: HEPATIC CIRRHOSIS
     Dates: start: 20160206, end: 20160219

REACTIONS (4)
  - Renal injury [Recovering/Resolving]
  - Acute hepatic failure [Recovering/Resolving]
  - Ascites [Recovering/Resolving]
  - Drug interaction [Unknown]
